FAERS Safety Report 16626905 (Version 1)
Quarter: 2019Q3

REPORT INFORMATION
  Report Type: Spontaneous
  Country: US (occurrence: US)
  Receive Date: 20190724
  Receipt Date: 20190724
  Transmission Date: 20191004
  Serious: No
  Sender: FDA-Public Use
  Company Number: US-SA-2019SA197335

PATIENT
  Age: 37 Year
  Sex: Female

DRUGS (1)
  1. DUPIXENT [Suspect]
     Active Substance: DUPILUMAB
     Indication: ASTHMA
     Dosage: UNK
     Dates: start: 20190703

REACTIONS (4)
  - Hypoaesthesia oral [Unknown]
  - Swollen tongue [Unknown]
  - Headache [Unknown]
  - Ear discomfort [Unknown]

NARRATIVE: CASE EVENT DATE: 20190703
